FAERS Safety Report 20446451 (Version 2)
Quarter: 2022Q1

REPORT INFORMATION
  Report Type: Other
  Country: US (occurrence: None)
  Receive Date: 20220208
  Receipt Date: 20220217
  Transmission Date: 20220423
  Serious: Yes (Other)
  Sender: FDA-Public Use
  Company Number: US-ROCHE-3016504

PATIENT
  Sex: Female

DRUGS (1)
  1. OCREVUS [Suspect]
     Active Substance: OCRELIZUMAB
     Indication: Relapsing-remitting multiple sclerosis
     Dosage: NEXT DOT: 04/APR/2019, 18/APR/2019, 18/OCT/2019, 28/APR/2020,14/DEC/2020, 03/NOV/2020, 04/MAY/2021,
     Route: 065
     Dates: start: 20200411, end: 20211112

REACTIONS (1)
  - COVID-19 pneumonia [Unknown]
